FAERS Safety Report 16478346 (Version 2)
Quarter: 2019Q4

REPORT INFORMATION
  Report Type: Report from Study
  Country: None (occurrence: US)
  Receive Date: 20190626
  Receipt Date: 20191011
  Transmission Date: 20200122
  Serious: Yes (Hospitalization, Other)
  Sender: FDA-Public Use
  Company Number: US-ABBVIE-19K-163-2763884-00

PATIENT
  Age: 76 Year
  Sex: Female
  Weight: 76.27 kg

DRUGS (4)
  1. HUMIRA [Suspect]
     Active Substance: ADALIMUMAB
     Indication: PSORIATIC ARTHROPATHY
     Route: 058
     Dates: start: 200604, end: 2017
  2. NORCO [Concomitant]
     Active Substance: ACETAMINOPHEN\HYDROCODONE BITARTRATE
     Indication: PAIN
     Dates: start: 2006
  3. OTEZLA [Concomitant]
     Active Substance: APREMILAST
     Indication: PSORIATIC ARTHROPATHY
  4. HUMIRA [Suspect]
     Active Substance: ADALIMUMAB
     Route: 058
     Dates: start: 2017, end: 201905

REACTIONS (8)
  - Breast cancer [Recovered/Resolved]
  - Spinal operation [Unknown]
  - Sciatica [Recovered/Resolved]
  - Superficial injury of eye [Recovering/Resolving]
  - Spinal decompression [Recovered/Resolved]
  - Breast conserving surgery [Recovering/Resolving]
  - Nasopharyngitis [Recovering/Resolving]
  - Sciatica [Recovering/Resolving]

NARRATIVE: CASE EVENT DATE: 2015
